FAERS Safety Report 8576207-9 (Version None)
Quarter: 2012Q3

REPORT INFORMATION
  Report Type: 
  Country: None (occurrence: None)
  Receive Date: 20120724
  Receipt Date: 20120711
  Transmission Date: 20120928
  Serious: Yes (Hospitalization)
  Sender: FDA-Public Use
  Company Number: 2012-002557

PATIENT
  Age: 58 Year
  Sex: Female

DRUGS (18)
  1. NEXIUM [Suspect]
     Dates: start: 20100101, end: 20120315
  2. METHOTREXATE SODIUM [Suspect]
     Indication: RHEUMATOID ARTHRITIS
     Dosage: 20 MG, ONCE WEEKLY
     Dates: start: 19970101, end: 20120315
  3. ZOLPIDEM TARTRATE [Concomitant]
  4. ACTONEL [Suspect]
     Dosage: ORAL
     Route: 048
     Dates: start: 20100101, end: 20120315
  5. XANAX [Concomitant]
  6. AMITRIPTYLINE HYDROCHLORIDE [Suspect]
     Indication: DEPRESSION
     Dosage: 40 MG/ML, ORAL
     Route: 048
     Dates: end: 20120303
  7. FLODIL /00646501/ (FELODIPINE) [Concomitant]
  8. LYRICA [Suspect]
     Indication: PAIN
     Dosage: 125 MG DAILY
     Dates: start: 20100101, end: 20120315
  9. ENBREL [Suspect]
     Indication: RHEUMATOID ARTHRITIS
     Dosage: 50 MG, ONCE WEEKLY, SUBCUTANEOUS
     Route: 058
     Dates: start: 20111018, end: 20120303
  10. ENBREL [Suspect]
     Indication: POLYARTHRITIS
     Dosage: 50 MG, ONCE WEEKLY, SUBCUTANEOUS
     Route: 058
     Dates: start: 20111018, end: 20120303
  11. MABTHERA (RITUXIMAB) [Suspect]
     Indication: RHEUMATOID ARTHRITIS
     Dates: start: 20091001, end: 20111001
  12. ESCITALOPRAM [Concomitant]
  13. PREDNISONE TAB [Concomitant]
  14. SULFARLEM (ANETHOLE TRITHIONE) [Concomitant]
  15. VALSARTAN [Concomitant]
  16. FOLIC ACID [Concomitant]
  17. ACETAMINOPHEN [Concomitant]
  18. VOLTARENE /00372302/ (DICLOFENAC SODIUM) [Concomitant]

REACTIONS (13)
  - HEADACHE [None]
  - PAIN [None]
  - MULTIPLE DRUG OVERDOSE INTENTIONAL [None]
  - LABORATORY TEST INTERFERENCE [None]
  - WHITE BLOOD CELL COUNT INCREASED [None]
  - NEUTROPHIL COUNT INCREASED [None]
  - AGRANULOCYTOSIS [None]
  - SUICIDE ATTEMPT [None]
  - AGITATION [None]
  - ASTHENIA [None]
  - CHILLS [None]
  - OEDEMA PERIPHERAL [None]
  - TOXICITY TO VARIOUS AGENTS [None]
